FAERS Safety Report 10298674 (Version 1)
Quarter: 2014Q3

REPORT INFORMATION
  Report Type: Spontaneous
  Country: DE (occurrence: DE)
  Receive Date: 20140711
  Receipt Date: 20140711
  Transmission Date: 20150326
  Serious: Yes (Congenital Anomaly)
  Sender: FDA-Public Use
  Company Number: DE-TEVA-493467GER

PATIENT
  Age: 0 Year
  Sex: Male

DRUGS (7)
  1. TETRAZEPAM [Suspect]
     Active Substance: TETRAZEPAM
     Route: 064
  2. VIANI [Suspect]
     Active Substance: FLUTICASONE PROPIONATE\SALMETEROL XINAFOATE
     Route: 064
  3. IBUPROFEN. [Suspect]
     Active Substance: IBUPROFEN
     Route: 064
  4. CELEBREX [Suspect]
     Active Substance: CELECOXIB
     Route: 064
  5. FOLIO FORTE [Concomitant]
     Active Substance: FOLIC ACID\VITAMINS
     Route: 064
  6. PROSTAGLANDIN [Concomitant]
     Route: 064
  7. SALBUTAMOL [Suspect]
     Active Substance: ALBUTEROL
     Route: 064

REACTIONS (2)
  - Transposition of the great vessels [Recovered/Resolved with Sequelae]
  - Ventricular septal defect [Recovered/Resolved with Sequelae]
